FAERS Safety Report 13824885 (Version 1)
Quarter: 2017Q3

REPORT INFORMATION
  Report Type: Spontaneous
  Country: MY (occurrence: MY)
  Receive Date: 20170802
  Receipt Date: 20170802
  Transmission Date: 20171127
  Serious: Yes (Other)
  Sender: FDA-Public Use
  Company Number: PHHY2017MY112760

PATIENT
  Age: 5 Year
  Sex: Male

DRUGS (1)
  1. STANDACILLIN [Suspect]
     Active Substance: AMPICILLIN
     Indication: PHARYNGITIS
     Route: 042

REACTIONS (3)
  - Pruritus [Recovered/Resolved]
  - Urticaria [Recovered/Resolved]
  - Periorbital oedema [Recovered/Resolved]
